FAERS Safety Report 4454299-6 (Version None)
Quarter: 2004Q3

REPORT INFORMATION
  Report Type: 
  Country: None (occurrence: None)
  Receive Date: 20040916
  Receipt Date: 20040916
  Transmission Date: 20050211
  Serious: Yes (Other)
  Sender: FDA-Public Use
  Company Number: None

PATIENT
  Age: 6 Year
  Sex: Female
  Weight: 22.1 kg

DRUGS (2)
  1. BUSULFAN (IV BUSULFAN) [Suspect]
     Dosage: 0.8ML/KG IV Q 6 H
     Route: 042
     Dates: start: 20040830, end: 20040902
  2. COMPATH [Concomitant]

REACTIONS (1)
  - CONVULSION [None]
